FAERS Safety Report 9819543 (Version 1)
Quarter: 2014Q1

REPORT INFORMATION
  Report Type: Spontaneous
  Country: US (occurrence: US)
  Receive Date: 20140115
  Receipt Date: 20140115
  Transmission Date: 20141002
  Serious: Yes (Death)
  Sender: FDA-Public Use
  Company Number: US-PFIZER INC-2014007554

PATIENT
  Age: 50 Year
  Sex: Female

DRUGS (5)
  1. MORPHINE SULFATE [Suspect]
  2. DEXTROMETHORPHAN HBR [Suspect]
  3. DOXYLAMINE [Suspect]
  4. PAROXETINE [Suspect]
  5. DIPHENHYDRAMINE [Suspect]

REACTIONS (1)
  - Drug abuse [Fatal]
